FAERS Safety Report 4928816-3 (Version None)
Quarter: 2006Q1

REPORT INFORMATION
  Report Type: 
  Country: None (occurrence: None)
  Receive Date: 20060227
  Receipt Date: 20060227
  Transmission Date: 20060701
  Serious: Yes (Hospitalization, Other)
  Sender: FDA-Public Use
  Company Number: None

PATIENT
  Sex: Female
  Weight: 74 kg

DRUGS (2)
  1. TAXOTERE [Suspect]
     Indication: ADENOCARCINOMA PANCREAS
     Dosage: 180 MG
     Dates: start: 20060123
  2. CAMPTOSAR [Suspect]
     Dosage: 344 MG
     Dates: start: 20060123

REACTIONS (10)
  - ABDOMINAL PAIN [None]
  - BILIARY DILATATION [None]
  - BLOOD BILIRUBIN INCREASED [None]
  - HEPATIC LESION [None]
  - JAUNDICE [None]
  - MASS [None]
  - MESENTERIC VEIN THROMBOSIS [None]
  - POST PROCEDURAL COMPLICATION [None]
  - SEPSIS [None]
  - SPLENIC VEIN THROMBOSIS [None]
